FAERS Safety Report 12601687 (Version 1)
Quarter: 2016Q3

REPORT INFORMATION
  Report Type: Spontaneous
  Country: US (occurrence: None)
  Receive Date: 20160727
  Receipt Date: 20160727
  Transmission Date: 20161109
  Serious: Yes (Disabling, Other)
  Sender: FDA-Public Use
  Company Number: None

PATIENT
  Age: 19 Year
  Sex: Male
  Weight: 60.78 kg

DRUGS (5)
  1. ZONISAMIDE. [Suspect]
     Active Substance: ZONISAMIDE
     Indication: SEIZURE
     Route: 048
     Dates: start: 20141206
  2. MULTIVITAMINS [Concomitant]
     Active Substance: VITAMINS
  3. LORATADINE. [Concomitant]
     Active Substance: LORATADINE
  4. FLUOXETINE [Concomitant]
     Active Substance: FLUOXETINE HYDROCHLORIDE
  5. CALMPLEX [Concomitant]

REACTIONS (3)
  - Melanocytic naevus [None]
  - Gynaecomastia [None]
  - Inflammation [None]

NARRATIVE: CASE EVENT DATE: 20160613
